FAERS Safety Report 11629108 (Version 2)
Quarter: 2015Q4

REPORT INFORMATION
  Report Type: Report from Study
  Country: DE (occurrence: DE)
  Receive Date: 20151014
  Receipt Date: 20151015
  Transmission Date: 20160304
  Serious: Yes (Other)
  Sender: FDA-Public Use
  Company Number: DE-SA-2015SA158302

PATIENT
  Sex: Female

DRUGS (1)
  1. LEMTRADA [Suspect]
     Active Substance: ALEMTUZUMAB
     Indication: MULTIPLE SCLEROSIS
     Route: 041
     Dates: start: 20141025, end: 20141029

REACTIONS (8)
  - Fatigue [Recovered/Resolved]
  - Headache [Recovered/Resolved]
  - Quadriparesis [Not Recovered/Not Resolved]
  - Pyrexia [Recovered/Resolved]
  - Hypothyroidism [Unknown]
  - Paresis [Not Recovered/Not Resolved]
  - Sensory disturbance [Not Recovered/Not Resolved]
  - Blood test abnormal [Recovered/Resolved]

NARRATIVE: CASE EVENT DATE: 2014
